FAERS Safety Report 24771086 (Version 3)
Quarter: 2025Q1

REPORT INFORMATION
  Report Type: Spontaneous
  Country: JP (occurrence: JP)
  Receive Date: 20241224
  Receipt Date: 20250102
  Transmission Date: 20250408
  Serious: Yes (Other)
  Sender: PURDUE
  Company Number: JP-NAPPMUNDI-GBR-2024-0122238

PATIENT
  Age: 8 Year
  Sex: Male
  Weight: 26 kg

DRUGS (9)
  1. METHYLPHENIDATE HYDROCHLORIDE [Interacting]
     Active Substance: METHYLPHENIDATE HYDROCHLORIDE
     Indication: Attention deficit hyperactivity disorder
     Dosage: EXTENDED-RELEASE, DOSE ESCALATION, TAKEN IN THE MORNING ONLY
     Route: 065
  2. METHYLPHENIDATE HYDROCHLORIDE [Interacting]
     Active Substance: METHYLPHENIDATE HYDROCHLORIDE
     Indication: Tic
  3. METHYLPHENIDATE HYDROCHLORIDE [Interacting]
     Active Substance: METHYLPHENIDATE HYDROCHLORIDE
     Indication: Attention deficit hyperactivity disorder
     Dosage: EXTENDED-RELEASE, DOSE ESCALATION, TAKEN IN THE MORNING ONLY
     Route: 065
  4. METHYLPHENIDATE HYDROCHLORIDE [Interacting]
     Active Substance: METHYLPHENIDATE HYDROCHLORIDE
     Indication: Tic
  5. RISPERIDONE [Interacting]
     Active Substance: RISPERIDONE
     Indication: Attention deficit hyperactivity disorder
     Route: 065
  6. RISPERIDONE [Interacting]
     Active Substance: RISPERIDONE
     Route: 048
  7. RISPERIDONE [Interacting]
     Active Substance: RISPERIDONE
     Dosage: TAKEN IN THE EVENING ONLY
     Route: 048
  8. GUANFACINE [Concomitant]
     Active Substance: GUANFACINE
     Indication: Product used for unknown indication
     Route: 065
  9. GUANFACINE [Concomitant]
     Active Substance: GUANFACINE
     Dosage: UP-TITRATED, EXTENDED-RELEASE, TAKEN IN THE EVENING ONLY
     Route: 048

REACTIONS (3)
  - Drug interaction [Recovered/Resolved]
  - Oromandibular dystonia [Recovered/Resolved]
  - Intentional dose omission [Unknown]
